FAERS Safety Report 23103852 (Version 1)
Quarter: 2023Q4

REPORT INFORMATION
  Report Type: Report from Study
  Country: CN (occurrence: CN)
  Receive Date: 20231025
  Receipt Date: 20231025
  Transmission Date: 20240110
  Serious: Yes (Hospitalization)
  Sender: FDA-Public Use
  Company Number: CN-ANTENGENE-20231002036

PATIENT
  Age: 56 Year
  Sex: Female

DRUGS (8)
  1. SELINEXOR [Suspect]
     Active Substance: SELINEXOR
     Indication: Diffuse large B-cell lymphoma
     Dosage: 60 MG, WEEKLY
     Route: 048
     Dates: start: 20230428, end: 20230512
  2. SELINEXOR [Suspect]
     Active Substance: SELINEXOR
     Dosage: UNK
     Route: 048
     Dates: start: 20230512, end: 20230515
  3. LENALIDOMIDE [Suspect]
     Active Substance: LENALIDOMIDE
     Indication: Diffuse large B-cell lymphoma
     Dosage: 25 MG, CYCLIC
     Route: 048
     Dates: start: 20230428, end: 20230515
  4. RITUXIMAB [Suspect]
     Active Substance: RITUXIMAB
     Indication: Diffuse large B-cell lymphoma
     Dosage: 570 MG, CYCLIC
     Route: 042
     Dates: start: 20230428, end: 20230515
  5. AKYNZEO [Concomitant]
     Dosage: UNK
     Dates: start: 20230428, end: 20230512
  6. RESERPINE [Concomitant]
     Active Substance: RESERPINE
     Dosage: UNK
     Dates: start: 20230425, end: 20230619
  7. METOPROLOL TARTRATE [Concomitant]
     Active Substance: METOPROLOL TARTRATE
     Dosage: UNK
     Dates: start: 20230120, end: 20230626
  8. HEROMBOPAG OLAMINE [Concomitant]
     Dosage: UNK
     Dates: start: 20230120, end: 20230626

REACTIONS (2)
  - Neutrophil count decreased [Recovered/Resolved]
  - Platelet count decreased [Not Recovered/Not Resolved]

NARRATIVE: CASE EVENT DATE: 20230515
